FAERS Safety Report 21089628 (Version 2)
Quarter: 2022Q3

REPORT INFORMATION
  Report Type: Spontaneous
  Country: FR (occurrence: FR)
  Receive Date: 20220715
  Receipt Date: 20220720
  Transmission Date: 20221027
  Serious: Yes (Hospitalization, Other)
  Sender: FDA-Public Use
  Company Number: FR-TEVA-2022-FR-2054198

PATIENT
  Age: 2 Month
  Sex: Male
  Weight: 2.504 kg

DRUGS (5)
  1. PROGLYCEM [Suspect]
     Active Substance: DIAZOXIDE
     Indication: Hyperinsulinism
     Dosage: STARTED AT A DOSAGE OF 2 MG/KG/8 HOURS WITH DILUTION AT 1/10 IN WATER FOR INJECTION
     Route: 048
     Dates: start: 20211214, end: 20211226
  2. PROGLYCEM [Suspect]
     Active Substance: DIAZOXIDE
     Indication: Hypoglycaemia
  3. SODIUM FEREDETATE [Concomitant]
     Active Substance: SODIUM FEREDETATE
     Indication: Product used for unknown indication
  4. FOLIC ACID [Concomitant]
     Active Substance: FOLIC ACID
     Indication: Product used for unknown indication
  5. CHOLECALCIFEROL [Concomitant]
     Active Substance: CHOLECALCIFEROL
     Indication: Product used for unknown indication

REACTIONS (8)
  - Abdominal distension [Unknown]
  - Oedema peripheral [Recovering/Resolving]
  - Oedema genital [Recovering/Resolving]
  - Rhinitis [Unknown]
  - Acquired hydrocele [Unknown]
  - Anaemia [Unknown]
  - Incorrect dose administered [Unknown]
  - Overdose [Unknown]

NARRATIVE: CASE EVENT DATE: 20211201
